FAERS Safety Report 5343823-7 (Version None)
Quarter: 2007Q2

REPORT INFORMATION
  Report Type: 
  Country: None (occurrence: None)
  Receive Date: 20070531
  Receipt Date: 20070521
  Transmission Date: 20071010
  Serious: Yes (Other)
  Sender: FDA-Public Use
  Company Number: TPA2007A01062

PATIENT
  Age: 60 Year
  Sex: Male

DRUGS (3)
  1. ACTOS [Suspect]
     Indication: DIABETES MELLITUS NON-INSULIN-DEPENDENT
     Dosage: 30 MG, 1 IN 1 D, PER ORAL
     Route: 048
     Dates: start: 20060715, end: 20060806
  2. GLYBURIDE [Concomitant]
  3. METFORMIN HCL [Concomitant]

REACTIONS (3)
  - DYSPNOEA [None]
  - HAEMOLYTIC ANAEMIA [None]
  - OEDEMA [None]
